FAERS Safety Report 9140894 (Version 2)
Quarter: 2013Q2

REPORT INFORMATION
  Report Type: Spontaneous
  Country: BR (occurrence: BR)
  Receive Date: 20130305
  Receipt Date: 20130405
  Transmission Date: 20140414
  Serious: Yes (Other)
  Sender: FDA-Public Use
  Company Number: CHNY2013BR000721

PATIENT
  Sex: Female
  Weight: 58 kg

DRUGS (3)
  1. CIBALENAA [Suspect]
     Indication: HEADACHE
     Dosage: 1 DF, QD
     Dates: start: 20130226, end: 20130226
  2. CITONEURIN /00176001/ [Suspect]
     Dosage: 2 DF, QD
     Route: 048
     Dates: start: 20130118
  3. GABAPENTINA [Suspect]
     Dosage: 2 DF, QD
     Route: 048
     Dates: start: 20130120

REACTIONS (2)
  - Blood urine present [Recovering/Resolving]
  - Fear [Recovering/Resolving]
